FAERS Safety Report 19051085 (Version 1)
Quarter: 2021Q1

REPORT INFORMATION
  Report Type: Spontaneous
  Country: US (occurrence: US)
  Receive Date: 20210324
  Receipt Date: 20210324
  Transmission Date: 20210420
  Serious: No
  Sender: FDA-Public Use
  Company Number: US-ALLERGAN-2046606US

PATIENT
  Age: 64 Year
  Sex: Male
  Weight: 83.9 kg

DRUGS (3)
  1. HUMIRA [Concomitant]
     Active Substance: ADALIMUMAB
     Indication: CROHN^S DISEASE
     Dosage: 40 MG, Q WEEK
     Dates: start: 201804
  2. MESALAZINE 1 GM SUP [Suspect]
     Active Substance: MESALAMINE
     Indication: INFLAMMATION
     Dosage: UNK
     Route: 065
     Dates: start: 20201022, end: 20201030
  3. AZATHIOPRINE. [Concomitant]
     Active Substance: AZATHIOPRINE
     Indication: PRODUCT USED FOR UNKNOWN INDICATION
     Dosage: 3.5 DF, QD
     Dates: start: 20201116

REACTIONS (3)
  - Influenza like illness [Recovered/Resolved]
  - Hypersensitivity [Recovered/Resolved]
  - Off label use [Unknown]

NARRATIVE: CASE EVENT DATE: 20201025
